FAERS Safety Report 13536867 (Version 2)
Quarter: 2017Q2

REPORT INFORMATION
  Report Type: Spontaneous
  Country: CA (occurrence: CA)
  Receive Date: 20170511
  Receipt Date: 20170529
  Transmission Date: 20170830
  Serious: Yes (Other)
  Sender: FDA-Public Use
  Company Number: CA-ORION CORPORATION ORION PHARMA-TREX2017-1374

PATIENT
  Age: 44 Year
  Sex: Female
  Weight: 63 kg

DRUGS (24)
  1. METHOTREXATE (TRADE NAME UNKNOWN) [Suspect]
     Active Substance: METHOTREXATE
     Indication: RHEUMATOID ARTHRITIS
     Route: 048
  2. ALENDRONIC ACID [Suspect]
     Active Substance: ALENDRONIC ACID
     Route: 065
  3. MELOXICAM. [Suspect]
     Active Substance: MELOXICAM
     Route: 065
  4. NAPROXEN. [Suspect]
     Active Substance: NAPROXEN
     Route: 048
  5. PREDNISONE. [Suspect]
     Active Substance: PREDNISONE
     Route: 065
  6. HUMIRA [Suspect]
     Active Substance: ADALIMUMAB
     Route: 058
  7. FOLIC ACID. [Concomitant]
     Active Substance: FOLIC ACID
     Route: 065
  8. METHOTREXATE (TRADE NAME UNKNOWN) [Suspect]
     Active Substance: METHOTREXATE
     Route: 058
  9. ENBREL [Suspect]
     Active Substance: ETANERCEPT
     Indication: RHEUMATOID ARTHRITIS
     Route: 058
  10. RATIO-OXYCOCET [Suspect]
     Active Substance: ACETAMINOPHEN\OXYCODONE HYDROCHLORIDE
     Route: 065
  11. IMURAN [Suspect]
     Active Substance: AZATHIOPRINE
     Route: 065
  12. SEPTRA [Suspect]
     Active Substance: SULFAMETHOXAZOLE\TRIMETHOPRIM
     Route: 065
  13. SULFASALAZINE. [Suspect]
     Active Substance: SULFASALAZINE
     Indication: RHEUMATOID ARTHRITIS
     Route: 048
  14. PANTOLOC [Suspect]
     Active Substance: PANTOPRAZOLE SODIUM
     Route: 048
  15. VIMOVO [Suspect]
     Active Substance: ESOMEPRAZOLE MAGNESIUM\NAPROXEN
     Route: 065
  16. AMITRIPTYLINE [Suspect]
     Active Substance: AMITRIPTYLINE
     Route: 048
  17. DEPO-MEDROL [Suspect]
     Active Substance: METHYLPREDNISOLONE ACETATE
     Indication: RHEUMATOID ARTHRITIS
     Route: 014
  18. NAPROXEN. [Suspect]
     Active Substance: NAPROXEN
     Route: 048
  19. PREDNISONE. [Suspect]
     Active Substance: PREDNISONE
     Indication: RHEUMATOID ARTHRITIS
     Route: 065
  20. PLAQUENIL [Concomitant]
     Active Substance: HYDROXYCHLOROQUINE SULFATE
     Route: 065
  21. LYRICA [Suspect]
     Active Substance: PREGABALIN
     Indication: RHEUMATOID ARTHRITIS
     Route: 048
  22. NAPROXEN. [Suspect]
     Active Substance: NAPROXEN
     Route: 048
  23. RANITIDINE. [Suspect]
     Active Substance: RANITIDINE
     Route: 048
  24. XELJANZ [Suspect]
     Active Substance: TOFACITINIB CITRATE
     Indication: RHEUMATOID ARTHRITIS
     Route: 048

REACTIONS (50)
  - Dry mouth [Unknown]
  - Impaired work ability [Unknown]
  - Lung disorder [Unknown]
  - Tenosynovitis stenosans [Unknown]
  - Crepitations [Unknown]
  - Joint swelling [Unknown]
  - Conjunctivitis [Unknown]
  - Erythema [Unknown]
  - Feeling jittery [Unknown]
  - Malaise [Unknown]
  - Musculoskeletal stiffness [Unknown]
  - Neoplasm malignant [Unknown]
  - Rheumatoid nodule [Unknown]
  - Abdominal pain [Unknown]
  - Antinuclear antibody positive [Unknown]
  - Dry eye [Unknown]
  - Fibromyalgia [Unknown]
  - Infection [Unknown]
  - Nodule [Unknown]
  - Pneumonia [Unknown]
  - Thrombosis [Unknown]
  - Drug effect decreased [Unknown]
  - Dyspnoea [Unknown]
  - Eye irritation [Unknown]
  - Ocular hyperaemia [Unknown]
  - Wheezing [Unknown]
  - Arthralgia [Unknown]
  - Atelectasis [Unknown]
  - Cushingoid [Unknown]
  - Musculoskeletal pain [Unknown]
  - Pain in extremity [Unknown]
  - Pleuritic pain [Unknown]
  - Swelling face [Unknown]
  - Synovial cyst [Unknown]
  - Bursitis [Unknown]
  - Interstitial lung disease [Unknown]
  - Joint effusion [Unknown]
  - Nausea [Unknown]
  - Pain [Unknown]
  - Rash [Unknown]
  - Scleritis [Unknown]
  - Ulcer [Unknown]
  - Visual impairment [Unknown]
  - Eye pain [Unknown]
  - Flank pain [Unknown]
  - Peripheral swelling [Unknown]
  - Photophobia [Unknown]
  - Pruritus [Unknown]
  - Rheumatoid arthritis [Unknown]
  - Tenderness [Unknown]
